FAERS Safety Report 6874412-0 (Version None)
Quarter: 2010Q3

REPORT INFORMATION
  Report Type: 
  Country: None (occurrence: None)
  Receive Date: 20100723
  Receipt Date: 20100723
  Transmission Date: 20110219
  Serious: Yes (Death)
  Sender: FDA-Public Use
  Company Number: None

PATIENT
  Sex: Male
  Weight: 98 kg

DRUGS (2)
  1. FLUDARABINE PHOSPHATE [Suspect]
     Indication: ACUTE MYELOID LEUKAEMIA
     Dosage: 75 MG DAILYX5 IV
     Route: 042
     Dates: start: 20100112, end: 20100116
  2. CYCLOPHOSPHAMIDE [Suspect]
     Indication: ACUTE MYELOID LEUKAEMIA
     Dosage: 2140 MG DAILYX2 IV
     Route: 042
     Dates: start: 20100117, end: 20100118

REACTIONS (1)
  - BRONCHOPULMONARY ASPERGILLOSIS [None]
